FAERS Safety Report 24671001 (Version 2)
Quarter: 2025Q2

REPORT INFORMATION
  Report Type: Spontaneous
  Country: US (occurrence: US)
  Receive Date: 20241127
  Receipt Date: 20250522
  Transmission Date: 20250716
  Serious: No
  Sender: NORDIC PHARMA
  Company Number: US-NORIDC PHARMA, INC-2024US003502

PATIENT

DRUGS (1)
  1. TRANEXAMIC ACID [Suspect]
     Active Substance: TRANEXAMIC ACID
     Indication: Menopause
     Dosage: 650 MG, TID
     Route: 048
     Dates: start: 20241006, end: 20241007

REACTIONS (2)
  - Flank pain [Not Recovered/Not Resolved]
  - Vomiting [Recovered/Resolved]

NARRATIVE: CASE EVENT DATE: 20241007
